FAERS Safety Report 15971949 (Version 1)
Quarter: 2019Q1

REPORT INFORMATION
  Report Type: Report from Study
  Country: US (occurrence: US)
  Receive Date: 20190215
  Receipt Date: 20190215
  Transmission Date: 20190418
  Serious: Yes (Hospitalization)
  Sender: FDA-Public Use
  Company Number: US-AMAG PHARMACEUTICALS, INC.-AMAG201800613

PATIENT

DRUGS (1)
  1. MAKENA [Suspect]
     Active Substance: HYDROXYPROGESTERONE CAPROATE
     Indication: PREMATURE DELIVERY
     Dosage: 250 UNK, WEEKLY
     Route: 030
     Dates: start: 20171214

REACTIONS (2)
  - Inappropriate schedule of product administration [Unknown]
  - Premature labour [Unknown]

NARRATIVE: CASE EVENT DATE: 20180206
